FAERS Safety Report 6603344-8 (Version None)
Quarter: 2010Q1

REPORT INFORMATION
  Report Type: 
  Country: None (occurrence: None)
  Receive Date: 20100226
  Receipt Date: 20090213
  Transmission Date: 20100710
  Serious: No
  Sender: FDA-Public Use
  Company Number: A0769188A

PATIENT
  Age: 16 Year
  Sex: Female

DRUGS (1)
  1. VALTREX [Suspect]
     Indication: DRUG USE FOR UNKNOWN INDICATION
     Dates: start: 20081201, end: 20081201

REACTIONS (1)
  - ADVERSE EVENT [None]
